FAERS Safety Report 12305523 (Version 3)
Quarter: 2017Q2

REPORT INFORMATION
  Report Type: Report from Study
  Country: AU (occurrence: AU)
  Receive Date: 20160426
  Receipt Date: 20170613
  Transmission Date: 20170830
  Serious: Yes (Hospitalization, Other)
  Sender: FDA-Public Use
  Company Number: AU-CELGENEUS-AUS-2016033580

PATIENT
  Age: 51 Year
  Sex: Male

DRUGS (1)
  1. OTEZLA [Suspect]
     Active Substance: APREMILAST
     Indication: PSORIASIS
     Dosage: 60 MILLIGRAM
     Route: 048
     Dates: start: 201602, end: 20160322

REACTIONS (3)
  - Abdominal pain [Recovering/Resolving]
  - Gastric cancer [Not Recovered/Not Resolved]
  - Intestinal infarction [Unknown]

NARRATIVE: CASE EVENT DATE: 201602
